FAERS Safety Report 8396011-4 (Version None)
Quarter: 2012Q2

REPORT INFORMATION
  Report Type: 
  Country: None (occurrence: None)
  Receive Date: 20120530
  Receipt Date: 20120523
  Transmission Date: 20120825
  Serious: Yes (Life-Threatening)
  Sender: FDA-Public Use
  Company Number: US-ROCHE-1071819

PATIENT
  Sex: Female
  Weight: 74.91 kg

DRUGS (1)
  1. XOLAIR [Suspect]
     Indication: ASTHMA
     Dosage: STARTED BEFORE 2008
     Route: 058

REACTIONS (2)
  - DYSPHAGIA [None]
  - CHOKING SENSATION [None]
